FAERS Safety Report 11376984 (Version 1)
Quarter: 2015Q3

REPORT INFORMATION
  Report Type: Spontaneous
  Country: IT (occurrence: IT)
  Receive Date: 20150813
  Receipt Date: 20150813
  Transmission Date: 20151125
  Serious: Yes (Other)
  Sender: FDA-Public Use
  Company Number: IT-PRINSTON PHARMACEUTICAL INC.-2015PRN00059

PATIENT
  Age: 56 Year
  Sex: Male

DRUGS (1)
  1. ROPINIROLE. [Suspect]
     Active Substance: ROPINIROLE
     Dosage: 8 MG, 1X/DAY

REACTIONS (3)
  - Dropped head syndrome [Recovered/Resolved]
  - Myopathy [Recovered/Resolved]
  - Withdrawal syndrome [Recovered/Resolved]
